FAERS Safety Report 7403903-9 (Version None)
Quarter: 2011Q2

REPORT INFORMATION
  Report Type: 
  Country: None (occurrence: None)
  Receive Date: 20110401
  Receipt Date: 20110318
  Transmission Date: 20111010
  Serious: Yes (Hospitalization)
  Sender: FDA-Public Use
  Company Number: 2011000941

PATIENT
  Age: 52 Year
  Sex: Female

DRUGS (4)
  1. ALBUTAMOL (SALBUTAMOL) [Concomitant]
  2. PROCHLORPERAZINE EDISYLATE [Concomitant]
  3. POTASSIUM CHLORIDE [Concomitant]
  4. ERLOTINIB (ERLOTINIB) (TABLET) [Suspect]
     Indication: NON-SMALL CELL LUNG CANCER
     Dosage: 150 MG, DAILY, ORAL
     Route: 048
     Dates: start: 20101110

REACTIONS (5)
  - HYPOKALAEMIA [None]
  - UPPER RESPIRATORY TRACT INFECTION [None]
  - DEHYDRATION [None]
  - ASTHENIA [None]
  - FATIGUE [None]
